FAERS Safety Report 20373953 (Version 6)
Quarter: 2022Q3

REPORT INFORMATION
  Report Type: Report from Study
  Country: DE (occurrence: DE)
  Receive Date: 20220125
  Receipt Date: 20220924
  Transmission Date: 20221027
  Serious: Yes (Hospitalization)
  Sender: FDA-Public Use
  Company Number: DE-NOVARTISPH-NVSC2022DE013197

PATIENT
  Sex: Male
  Weight: 92 kg

DRUGS (32)
  1. COSENTYX [Suspect]
     Active Substance: SECUKINUMAB
     Indication: Psoriatic arthropathy
     Dosage: 300 MG (ONCE)
     Route: 065
     Dates: start: 20210328, end: 20210328
  2. COSENTYX [Suspect]
     Active Substance: SECUKINUMAB
     Dosage: 300 MG (ONCE)
     Route: 065
     Dates: start: 20210815, end: 20210815
  3. COSENTYX [Suspect]
     Active Substance: SECUKINUMAB
     Dosage: 300 MG (ONCE)
     Route: 065
     Dates: start: 20210912, end: 20210912
  4. COSENTYX [Suspect]
     Active Substance: SECUKINUMAB
     Dosage: 300 MG (ONCE)
     Route: 065
     Dates: start: 20211009, end: 20211009
  5. COSENTYX [Suspect]
     Active Substance: SECUKINUMAB
     Dosage: 300 MG (ONCE)
     Route: 065
     Dates: start: 20211107, end: 20211107
  6. COSENTYX [Suspect]
     Active Substance: SECUKINUMAB
     Dosage: 300 MG (ONCE)
     Route: 065
     Dates: start: 20211206, end: 20211206
  7. COSENTYX [Suspect]
     Active Substance: SECUKINUMAB
     Dosage: 300 MG (ONCE)
     Route: 065
     Dates: start: 20220102, end: 20220102
  8. COSENTYX [Suspect]
     Active Substance: SECUKINUMAB
     Dosage: 300 MG, (ONCE)
     Route: 065
     Dates: start: 20220130, end: 20220130
  9. COSENTYX [Suspect]
     Active Substance: SECUKINUMAB
     Dosage: 300 MG, (ONCE)
     Route: 065
     Dates: start: 20220227, end: 20220227
  10. COSENTYX [Suspect]
     Active Substance: SECUKINUMAB
     Dosage: 300 MG, (ONCE)
     Route: 065
     Dates: start: 20220328, end: 20220328
  11. COSENTYX [Suspect]
     Active Substance: SECUKINUMAB
     Dosage: 300 MG, (ONCE)
     Route: 065
     Dates: start: 20220424, end: 20220424
  12. COSENTYX [Suspect]
     Active Substance: SECUKINUMAB
     Dosage: 300 MG, (ONCE)
     Route: 065
     Dates: start: 20220522, end: 20220522
  13. COSENTYX [Suspect]
     Active Substance: SECUKINUMAB
     Dosage: 300 MG, (ONCE)
     Route: 065
     Dates: start: 20220619, end: 20220619
  14. COSENTYX [Suspect]
     Active Substance: SECUKINUMAB
     Dosage: 300 MG, (ONCE)
     Route: 065
     Dates: start: 20220717, end: 20220717
  15. IVABRADINE [Concomitant]
     Active Substance: IVABRADINE
     Indication: Coronary artery disease
     Dosage: 5 MG, BID
     Route: 048
     Dates: start: 2018, end: 20211118
  16. LOSARTAN [Concomitant]
     Active Substance: LOSARTAN
     Indication: Hypertension
     Dosage: 50 MG, QD
     Route: 048
     Dates: start: 2018
  17. ASPIRIN [Concomitant]
     Active Substance: ASPIRIN
     Indication: Thrombocytopenia
     Dosage: 100 MG, QD
     Route: 048
     Dates: start: 2018
  18. ASPIRIN [Concomitant]
     Active Substance: ASPIRIN
     Indication: Coronary artery disease
  19. METAMIZOLE [Concomitant]
     Active Substance: METAMIZOLE
     Indication: Psoriatic arthropathy
     Dosage: 500 MG (6 TIMES DAILY)
     Route: 048
     Dates: start: 2018
  20. METAMIZOLE [Concomitant]
     Active Substance: METAMIZOLE
     Dosage: 1000 MG QID
     Route: 048
     Dates: start: 202203
  21. SIMVASTATIN [Concomitant]
     Active Substance: SIMVASTATIN
     Indication: Hypercholesterolaemia
     Dosage: 40 MG, QD
     Route: 048
     Dates: start: 2011, end: 20211118
  22. SIMVASTATIN [Concomitant]
     Active Substance: SIMVASTATIN
     Dosage: 40 MG, QD
     Route: 048
     Dates: start: 20211204
  23. OMEPRAZOLE [Concomitant]
     Active Substance: OMEPRAZOLE
     Indication: Gastritis prophylaxis
     Dosage: 40 MG, QD
     Route: 048
     Dates: start: 2018
  24. AMITRIPTYLINE [Concomitant]
     Active Substance: AMITRIPTYLINE
     Indication: Neuralgia
     Dosage: UNK, QD
     Route: 048
     Dates: start: 202005
  25. ZOPICLONE [Concomitant]
     Active Substance: ZOPICLONE
     Indication: Sleep disorder
     Dosage: 7.5 MG, PRN (AS NEEDED)
     Route: 048
     Dates: start: 2018
  26. HERBA VISION [Concomitant]
     Indication: Sjogren^s syndrome
     Dosage: 1 DROP PR EYE, TID
     Route: 061
     Dates: start: 202005
  27. HYDROMORPHONE HYDROCHLORIDE [Concomitant]
     Active Substance: HYDROMORPHONE HYDROCHLORIDE
     Indication: Psoriatic arthropathy
     Dosage: 4 MG, BID
     Route: 048
     Dates: start: 202005
  28. CLAVULANIC ACID [Concomitant]
     Active Substance: CLAVULANIC ACID
     Indication: Infection prophylaxis
     Dosage: 125 MG, BID
     Route: 048
     Dates: start: 20210804, end: 20210808
  29. OFLOXACIN [Concomitant]
     Active Substance: OFLOXACIN
     Indication: Infection prophylaxis
     Dosage: PRN (0.5 CENTIMETRE)
     Route: 065
     Dates: start: 20210805, end: 202108
  30. RANEXA [Concomitant]
     Active Substance: RANOLAZINE
     Indication: Coronary artery disease
     Dosage: 375 MG, BID
     Route: 048
     Dates: start: 20211119
  31. ATORVASTATIN CALCIUM\EZETIMIBE [Concomitant]
     Active Substance: ATORVASTATIN CALCIUM\EZETIMIBE
     Indication: Hypercholesterolaemia
     Dosage: 1 DOSAGE FORM, QD
     Route: 048
     Dates: start: 20211119, end: 20211203
  32. AMOXICILLIN [Concomitant]
     Active Substance: AMOXICILLIN
     Indication: Infection prophylaxis
     Dosage: 875 MG, BID
     Route: 048
     Dates: start: 20210804, end: 20210808

REACTIONS (1)
  - Coronary artery disease [Unknown]

NARRATIVE: CASE EVENT DATE: 20211101
